FAERS Safety Report 10207442 (Version 1)
Quarter: 2014Q2

REPORT INFORMATION
  Report Type: Spontaneous
  Country: US (occurrence: US)
  Receive Date: 20140530
  Receipt Date: 20140530
  Transmission Date: 20141212
  Serious: No
  Sender: FDA-Public Use
  Company Number: US-BRISTOL-MYERS SQUIBB COMPANY-19088541

PATIENT
  Age: 35 Year
  Sex: Male
  Weight: 97.5 kg

DRUGS (1)
  1. SUSTIVA [Suspect]

REACTIONS (2)
  - Drug screen positive [Unknown]
  - Weight increased [Unknown]
